FAERS Safety Report 9742991 (Version 1)
Quarter: 2013Q4

REPORT INFORMATION
  Report Type: Spontaneous
  Country: US (occurrence: US)
  Receive Date: 20131210
  Receipt Date: 20131210
  Transmission Date: 20140711
  Serious: Yes (Other)
  Sender: FDA-Public Use
  Company Number: US-PFIZER INC-2013348376

PATIENT
  Age: 67 Year
  Sex: Male
  Weight: 79.37 kg

DRUGS (6)
  1. LIPITOR [Suspect]
     Indication: POSTOPERATIVE CARE
     Dosage: 20 MG, 1X/DAY
  2. LIPITOR [Suspect]
     Dosage: 20 MG, ALTERNATE DAY
     Dates: start: 2013
  3. ATORVASTATIN CALCIUM [Suspect]
     Indication: POSTOPERATIVE CARE
     Dosage: 20 MG, ALTERNATE DAY
     Dates: start: 2013
  4. RAMIPRIL [Concomitant]
     Indication: CARDIAC FAILURE CONGESTIVE
     Dosage: 5 MG IN THE MORNING AND 10 MG AT NIGHT, 2X/DAY
  5. CARVEDILOL [Concomitant]
     Indication: CORONARY ARTERY DISEASE
     Dosage: 25 MG, 2X/DAY
  6. METFORMIN [Concomitant]
     Indication: TYPE 2 DIABETES MELLITUS
     Dosage: 1000 MG, 2X/DAY

REACTIONS (2)
  - Amnesia [Not Recovered/Not Resolved]
  - Intentional drug misuse [Unknown]
